FAERS Safety Report 18928985 (Version 1)
Quarter: 2021Q1

REPORT INFORMATION
  Report Type: Spontaneous
  Country: US (occurrence: US)
  Receive Date: 20210223
  Receipt Date: 20210223
  Transmission Date: 20210420
  Serious: No
  Sender: FDA-Public Use
  Company Number: US-ROCHE-2517368

PATIENT
  Sex: Female

DRUGS (1)
  1. NUTROPIN AQ [Suspect]
     Active Substance: SOMATROPIN
     Indication: HYPOPITUITARISM
     Dosage: NUSPIN 10 PEN, 10 MG/2ML, ONGOING: YES, NIGHTLY
     Route: 058
     Dates: start: 20191018

REACTIONS (2)
  - Product dose omission issue [Unknown]
  - Device malfunction [Unknown]
